FAERS Safety Report 21936452 (Version 1)
Quarter: 2023Q1

REPORT INFORMATION
  Report Type: Report from Study
  Country: US (occurrence: US)
  Receive Date: 20230201
  Receipt Date: 20230201
  Transmission Date: 20230417
  Serious: No
  Sender: FDA-Public Use
  Company Number: US-INCYTE CORPORATION-2020IN012170

PATIENT

DRUGS (1)
  1. PEMIGATINIB [Suspect]
     Active Substance: PEMIGATINIB
     Dosage: 13.5 MILLIGRAM
     Route: 048
     Dates: start: 20201202

REACTIONS (2)
  - Dyspnoea [Unknown]
  - Ear discomfort [Unknown]

NARRATIVE: CASE EVENT DATE: 20201204
